FAERS Safety Report 23634383 (Version 1)
Quarter: 2024Q1

REPORT INFORMATION
  Report Type: Spontaneous
  Country: US (occurrence: US)
  Receive Date: 20240314
  Receipt Date: 20240314
  Transmission Date: 20240409
  Serious: No
  Sender: FDA-Public Use
  Company Number: US-JNJFOC-20240312849

PATIENT

DRUGS (1)
  1. TALVEY [Suspect]
     Active Substance: TALQUETAMAB-TGVS
     Indication: Plasma cell myeloma refractory
     Route: 058

REACTIONS (5)
  - Dry mouth [Unknown]
  - Taste disorder [Unknown]
  - Oropharyngeal pain [Unknown]
  - Nausea [Unknown]
  - Off label use [Unknown]
